FAERS Safety Report 13458450 (Version 3)
Quarter: 2017Q2

REPORT INFORMATION
  Report Type: Spontaneous
  Country: US (occurrence: US)
  Receive Date: 20170419
  Receipt Date: 20170526
  Transmission Date: 20170830
  Serious: Yes (Disabling)
  Sender: FDA-Public Use
  Company Number: US-PFIZER INC-2017166566

PATIENT
  Age: 88 Year
  Sex: Female

DRUGS (4)
  1. XELJANZ [Suspect]
     Active Substance: TOFACITINIB CITRATE
     Indication: RHEUMATOID ARTHRITIS
     Dosage: 5 MG, DAILY
     Dates: start: 20170329
  2. VITAMIN D3 [Concomitant]
     Active Substance: CHOLECALCIFEROL
     Dosage: UNK
  3. METHOTREXATE SODIUM. [Concomitant]
     Active Substance: METHOTREXATE SODIUM
     Dosage: UNK
  4. SULPHUR [Concomitant]
     Active Substance: SULFUR
     Dosage: UNK

REACTIONS (9)
  - Pain in extremity [Not Recovered/Not Resolved]
  - Limb discomfort [Unknown]
  - White blood cell count increased [Unknown]
  - Gait disturbance [Unknown]
  - Grip strength decreased [Unknown]
  - Arthralgia [Recovered/Resolved]
  - Furuncle [Unknown]
  - Back pain [Unknown]
  - Muscle spasms [Unknown]
